FAERS Safety Report 24558464 (Version 1)
Quarter: 2024Q4

REPORT INFORMATION
  Report Type: Spontaneous
  Country: US (occurrence: US)
  Receive Date: 20241029
  Receipt Date: 20241029
  Transmission Date: 20250115
  Serious: No
  Sender: ELI LILLY AND COMPANY
  Company Number: US-ELI_LILLY_AND_COMPANY-US202410017605

PATIENT
  Age: 40 Year
  Sex: Female

DRUGS (4)
  1. ZEPBOUND [Suspect]
     Active Substance: TIRZEPATIDE
     Indication: Low density lipoprotein increased
     Dosage: 2.5 MG, UNKNOWN
     Route: 058
     Dates: start: 20241024
  2. ZEPBOUND [Suspect]
     Active Substance: TIRZEPATIDE
     Indication: Low density lipoprotein increased
     Dosage: 2.5 MG, UNKNOWN
     Route: 058
     Dates: start: 20241024
  3. ZEPBOUND [Suspect]
     Active Substance: TIRZEPATIDE
     Indication: Low density lipoprotein increased
     Dosage: 2.5 MG, UNKNOWN
     Route: 058
     Dates: start: 20241024
  4. ZEPBOUND [Suspect]
     Active Substance: TIRZEPATIDE
     Indication: Low density lipoprotein increased
     Dosage: 2.5 MG, UNKNOWN
     Route: 058
     Dates: start: 20241024

REACTIONS (2)
  - Accidental underdose [Unknown]
  - Off label use [Unknown]

NARRATIVE: CASE EVENT DATE: 20241024
